FAERS Safety Report 12343336 (Version 2)
Quarter: 2016Q2

REPORT INFORMATION
  Report Type: Report from Study
  Country: IT (occurrence: IT)
  Receive Date: 20160506
  Receipt Date: 20160519
  Transmission Date: 20160815
  Serious: Yes (Death, Hospitalization)
  Sender: FDA-Public Use
  Company Number: IT-ABBVIE-16P-083-1620677-00

PATIENT
  Age: 72 Year
  Sex: Male
  Weight: 75 kg

DRUGS (1)
  1. DUODOPA [Suspect]
     Active Substance: CARBIDOPA\LEVODOPA
     Indication: PARKINSON^S DISEASE
     Dosage: MD 10 +3?CR 3,6?ED 3,8
     Route: 050
     Dates: start: 20131021

REACTIONS (7)
  - Haematemesis [Unknown]
  - Mobility decreased [Unknown]
  - Drug ineffective [Unknown]
  - Cognitive disorder [Unknown]
  - Freezing phenomenon [Unknown]
  - Respiratory failure [Fatal]
  - General physical health deterioration [Fatal]

NARRATIVE: CASE EVENT DATE: 20160429
